FAERS Safety Report 4395878-4 (Version None)
Quarter: 2004Q3

REPORT INFORMATION
  Report Type: 
  Country: None (occurrence: None)
  Receive Date: 20040713
  Receipt Date: 20040705
  Transmission Date: 20050211
  Serious: Yes (Hospitalization, Other)
  Sender: FDA-Public Use
  Company Number: PHNU2004DE02373

PATIENT
  Age: 48 Year
  Sex: Female
  Weight: 74 kg

DRUGS (2)
  1. FEMARA [Suspect]
     Indication: BREAST CANCER FEMALE
     Dosage: 2.5 MG, QD
     Route: 048
     Dates: start: 20040201
  2. FOSAMAX [Concomitant]
     Route: 048

REACTIONS (8)
  - ANGIOGRAM RETINA [None]
  - FUNDOSCOPY [None]
  - MACULAR OEDEMA [None]
  - RETINAL HAEMORRHAGE [None]
  - RETINAL VEIN OCCLUSION [None]
  - VISUAL ACUITY REDUCED [None]
  - VISUAL FIELD DEFECT [None]
  - VISUAL FIELD TESTS ABNORMAL [None]
